FAERS Safety Report 7537786-3 (Version None)
Quarter: 2011Q2

REPORT INFORMATION
  Report Type: 
  Country: None (occurrence: None)
  Receive Date: 20110603
  Receipt Date: 20110518
  Transmission Date: 20111010
  Serious: Yes (Hospitalization, Other)
  Sender: FDA-Public Use
  Company Number: 2011MA006050

PATIENT
  Age: 30 Year
  Sex: Female

DRUGS (1)
  1. ACYCLOVIR [Suspect]
     Indication: MENINGITIS
     Dosage: 1350 MG;Q8;IV
     Route: 042

REACTIONS (4)
  - CRYSTALLURIA [None]
  - PARAESTHESIA [None]
  - DYSURIA [None]
  - RENAL FAILURE ACUTE [None]
